FAERS Safety Report 14106964 (Version 3)
Quarter: 2018Q3

REPORT INFORMATION
  Report Type: Spontaneous
  Country: US (occurrence: US)
  Receive Date: 20171019
  Receipt Date: 20180927
  Transmission Date: 20181010
  Serious: No
  Sender: FDA-Public Use
  Company Number: US-PFIZER INC-2017450076

PATIENT
  Age: 50 Year
  Sex: Female
  Weight: 99.79 kg

DRUGS (9)
  1. LYRICA [Suspect]
     Active Substance: PREGABALIN
     Dosage: 75 MG, 2X/DAY
     Dates: start: 201808
  2. SIMVASTATIN. [Concomitant]
     Active Substance: SIMVASTATIN
     Indication: BLOOD CHOLESTEROL ABNORMAL
     Dosage: 20MG ONE TABLET BY MOUTH ONCE A DAY
     Route: 048
  3. GLIMEPIRIDE. [Concomitant]
     Active Substance: GLIMEPIRIDE
     Indication: DIABETES MELLITUS
     Dosage: 2MG ONE TABLET BY MOUTH TWICE A DAY
     Route: 048
  4. SYNTHROID [Concomitant]
     Active Substance: LEVOTHYROXINE SODIUM
     Indication: THYROID DISORDER
     Dosage: 0.125MG ONE TABLET BY MOUTH DAILY
     Route: 048
  5. ZOLOFT [Concomitant]
     Active Substance: SERTRALINE HYDROCHLORIDE
     Indication: ANXIETY
     Dosage: 15MG ONE TABLET BY MOUTH ONCE A DAY
     Route: 048
  6. METFORMIN ER [Concomitant]
     Active Substance: METFORMIN HYDROCHLORIDE
     Indication: DIABETES MELLITUS
     Dosage: 500MG ONE TABLET BY MOUTH TWICE A DAY
     Route: 048
  7. LISINOPRIL. [Concomitant]
     Active Substance: LISINOPRIL
     Indication: RENAL DISORDER
     Dosage: 2.5MG ONE TABLET BY MOUTH DAILY
     Route: 048
  8. XANAX [Concomitant]
     Active Substance: ALPRAZOLAM
     Indication: DEPRESSION
     Dosage: 0.5MG ONE TABLET BY MOUTH ONE TIME DAILY AS NEEDED
     Route: 048
  9. LYRICA [Suspect]
     Active Substance: PREGABALIN
     Indication: INTERVERTEBRAL DISC PROTRUSION
     Dosage: 75 MG, 2X/DAY
     Route: 048

REACTIONS (8)
  - Condition aggravated [Recovered/Resolved]
  - Neck pain [Recovered/Resolved]
  - Drug dose omission [Unknown]
  - Back pain [Recovered/Resolved]
  - Dysphonia [Recovered/Resolved]
  - Rhinorrhoea [Recovered/Resolved]
  - Nasopharyngitis [Recovered/Resolved]
  - Oropharyngeal pain [Recovered/Resolved]

NARRATIVE: CASE EVENT DATE: 201709
